FAERS Safety Report 7043182-8 (Version None)
Quarter: 2010Q4

REPORT INFORMATION
  Report Type: 
  Country: None (occurrence: None)
  Receive Date: 20101013
  Receipt Date: 20091007
  Transmission Date: 20110411
  Serious: No
  Sender: FDA-Public Use
  Company Number: US-ASTRAZENECA-2009SE12291

PATIENT
  Age: 20 Year
  Sex: Female

DRUGS (2)
  1. SYMBICORT [Suspect]
     Indication: ASTHMA
     Dosage: 2 PUFFS TWICE DAILY
     Route: 055
     Dates: start: 20090801
  2. SYMBICORT [Suspect]
     Dosage: 4 PUFFS TWICE DAILY FOR TWO DAYS
     Route: 055
     Dates: start: 20090801

REACTIONS (1)
  - ILL-DEFINED DISORDER [None]
